FAERS Safety Report 13519141 (Version 1)
Quarter: 2017Q2

REPORT INFORMATION
  Report Type: Spontaneous
  Country: US (occurrence: US)
  Receive Date: 20170505
  Receipt Date: 20170505
  Transmission Date: 20170830
  Serious: No
  Sender: FDA-Public Use
  Company Number: GXBR2017US000938

PATIENT
  Sex: Female
  Weight: 45.35 kg

DRUGS (2)
  1. MULTI-VIT [Concomitant]
     Active Substance: VITAMINS
     Indication: VITAMIN SUPPLEMENTATION
     Dosage: UNK DF, UNK
  2. METRONIDAZOLE. [Suspect]
     Active Substance: METRONIDAZOLE
     Indication: ROSACEA
     Dosage: 1 DF, BID
     Route: 061
     Dates: start: 20170223, end: 20170224

REACTIONS (1)
  - Dry eye [Recovering/Resolving]
